FAERS Safety Report 18898551 (Version 1)
Quarter: 2021Q1

REPORT INFORMATION
  Report Type: Spontaneous
  Country: US (occurrence: US)
  Receive Date: 20210214
  Receipt Date: 20210214
  Transmission Date: 20210420
  Serious: Yes (Hospitalization)
  Sender: FDA-Public Use
  Company Number: None

PATIENT
  Age: 24 Year
  Sex: Female
  Weight: 72 kg

DRUGS (5)
  1. SPIRONOLACTONE, 50MG TABLETS [Suspect]
     Active Substance: SPIRONOLACTONE
     Indication: ACNE
     Dosage: ?          QUANTITY:1 TABLET(S);?
     Route: 048
     Dates: start: 20170216, end: 20210214
  2. BUPROPION XL [Concomitant]
     Active Substance: BUPROPION
  3. PRENATAL VITAMIN [Concomitant]
     Active Substance: VITAMINS
  4. VAGINAL PROBIOTIC [Concomitant]
  5. VITAMIN D [Concomitant]
     Active Substance: VITAMIN D NOS

REACTIONS (8)
  - Dysgeusia [None]
  - Dry mouth [None]
  - Breast pain [None]
  - Menstruation irregular [None]
  - Vaginal haemorrhage [None]
  - Metrorrhagia [None]
  - Taste disorder [None]
  - Breast mass [None]

NARRATIVE: CASE EVENT DATE: 20200117
